FAERS Safety Report 4790343-4 (Version None)
Quarter: 2005Q4

REPORT INFORMATION
  Report Type: 
  Country: None (occurrence: None)
  Receive Date: 20051005
  Receipt Date: 20051005
  Transmission Date: 20060501
  Serious: No
  Sender: FDA-Public Use
  Company Number: None

PATIENT
  Age: 24 Year
  Sex: Female
  Weight: 67 kg

DRUGS (8)
  1. GANCICLOVIR [Suspect]
     Indication: ANTIVIRAL PROPHYLAXIS
     Dosage: 400MG W Q 24?
     Dates: start: 20040809, end: 20041101
  2. BACTRIM [Concomitant]
  3. INSULIN (SSI) [Concomitant]
  4. RANITIDINE [Concomitant]
  5. PREDNISONE [Concomitant]
  6. MYCOPHENOLATE [Concomitant]
  7. TACROLIMUS [Concomitant]
  8. DILAUDID [Concomitant]

REACTIONS (6)
  - INFUSION SITE ERYTHEMA [None]
  - INFUSION SITE PRURITUS [None]
  - INFUSION SITE REACTION [None]
  - OXYGEN SATURATION DECREASED [None]
  - REFUSAL OF TREATMENT BY PATIENT [None]
  - URTICARIA [None]
